FAERS Safety Report 6021611-6 (Version None)
Quarter: 2008Q4

REPORT INFORMATION
  Report Type: 
  Country: None (occurrence: None)
  Receive Date: 20081222
  Receipt Date: 20081110
  Transmission Date: 20090506
  Serious: No
  Sender: FDA-Public Use
  Company Number: SPV1-2008-02489

PATIENT
  Age: 10 Year
  Sex: Female
  Weight: 34.9 kg

DRUGS (2)
  1. VYVANSE [Suspect]
     Indication: ATTENTION DEFICIT/HYPERACTIVITY DISORDER
     Dosage: 70 MG, 1X/DAY:QD, ORAL ; 60 MG, 1X/DAY:QD, ORAL
     Route: 048
     Dates: start: 20080101, end: 20080101
  2. VYVANSE [Suspect]
     Indication: ATTENTION DEFICIT/HYPERACTIVITY DISORDER
     Dosage: 70 MG, 1X/DAY:QD, ORAL ; 60 MG, 1X/DAY:QD, ORAL
     Route: 048
     Dates: start: 20080101

REACTIONS (2)
  - AGGRESSION [None]
  - DRUG EFFECT DECREASED [None]
